FAERS Safety Report 18452749 (Version 1)
Quarter: 2020Q4

REPORT INFORMATION
  Report Type: Spontaneous
  Country: US (occurrence: US)
  Receive Date: 20201102
  Receipt Date: 20201102
  Transmission Date: 20210114
  Serious: Yes (Hospitalization)
  Sender: FDA-Public Use
  Company Number: None

PATIENT
  Sex: Female

DRUGS (11)
  1. NORML [Concomitant]
  2. PANTOPRAZOLE SODIUM. [Concomitant]
     Active Substance: PANTOPRAZOLE SODIUM
  3. CEFPODOXIME [Concomitant]
     Active Substance: CEFPODOXIME
  4. SPRYCEL [Concomitant]
     Active Substance: DASATINIB
  5. POT CHLORIDE [Concomitant]
     Active Substance: POTASSIUM CHLORIDE
  6. VORICONAZOLE. [Concomitant]
     Active Substance: VORICONAZOLE
  7. CHLORHEX GLU [Concomitant]
  8. FERRALET [Concomitant]
  9. FUROSEMIDE. [Concomitant]
     Active Substance: FUROSEMIDE
  10. SPRYCEL [Concomitant]
     Active Substance: DASATINIB
     Indication: ACUTE MYELOID LEUKAEMIA
     Route: 048
     Dates: start: 20201005
  11. VALACYCLOVIR [Concomitant]
     Active Substance: VALACYCLOVIR HYDROCHLORIDE

REACTIONS (1)
  - Hospitalisation [None]
